FAERS Safety Report 5261949-3 (Version None)
Quarter: 2007Q1

REPORT INFORMATION
  Report Type: 
  Country: None (occurrence: None)
  Receive Date: 20070308
  Receipt Date: 20070224
  Transmission Date: 20070707
  Serious: No
  Sender: FDA-Public Use
  Company Number: US019490

PATIENT
  Age: 18 Month
  Sex: Male

DRUGS (1)
  1. ACTIQ [Suspect]
     Dosage: 800 UG ONCE BUCCAL
     Route: 002
     Dates: start: 20070224, end: 20070224

REACTIONS (1)
  - ACCIDENTAL DRUG INTAKE BY CHILD [None]
